FAERS Safety Report 22958174 (Version 3)
Quarter: 2023Q4

REPORT INFORMATION
  Report Type: Spontaneous
  Country: US (occurrence: US)
  Receive Date: 20230919
  Receipt Date: 20231109
  Transmission Date: 20240109
  Serious: Yes (Other)
  Sender: FDA-Public Use
  Company Number: US-SA-SAC20230913000573

PATIENT
  Age: 4 Year
  Sex: Male

DRUGS (1)
  1. DUPIXENT [Suspect]
     Active Substance: DUPILUMAB
     Indication: Dermatitis atopic
     Dosage: 300 MG, Q4W
     Route: 058
     Dates: start: 202303

REACTIONS (4)
  - Pericardial effusion [Unknown]
  - Skin fissures [Unknown]
  - Pleural effusion [Unknown]
  - Rash [Unknown]

NARRATIVE: CASE EVENT DATE: 20230101
